FAERS Safety Report 11787160 (Version 1)
Quarter: 2015Q4

REPORT INFORMATION
  Report Type: Report from Study
  Country: BR (occurrence: BR)
  Receive Date: 20151130
  Receipt Date: 20151130
  Transmission Date: 20160305
  Serious: Yes (Hospitalization, Other)
  Sender: FDA-Public Use
  Company Number: BR-GLAXOSMITHKLINE-BR2015GSK169752

PATIENT
  Sex: Female

DRUGS (1)
  1. FLUTICASONE PROPIONATE+SALMETEROL XINAFOATE [Suspect]
     Active Substance: FLUTICASONE PROPIONATE\SALMETEROL XINAFOATE
     Indication: PRODUCT USED FOR UNKNOWN INDICATION
     Dosage: UNK(120 DOSES (25/125 MCG),
     Dates: start: 2005

REACTIONS (12)
  - Haematemesis [Unknown]
  - Tachycardia [Unknown]
  - Bronchitis [Unknown]
  - Inappropriate schedule of drug administration [Unknown]
  - Pharyngitis [Unknown]
  - Amnesia [Unknown]
  - Neoplasm malignant [Unknown]
  - Dyspnoea [Unknown]
  - Weight decreased [Unknown]
  - Condition aggravated [Unknown]
  - Diarrhoea [Unknown]
  - Intestinal obstruction [Unknown]
